FAERS Safety Report 4337505-8 (Version None)
Quarter: 2004Q2

REPORT INFORMATION
  Report Type: 
  Country: None (occurrence: None)
  Receive Date: 20040408
  Receipt Date: 19990723
  Transmission Date: 20050107
  Serious: Yes (Death, Other)
  Sender: FDA-Public Use
  Company Number: WAES 99080990

PATIENT
  Age: 4 Day
  Sex: Male

DRUGS (8)
  1. INDOCIN I.V. [Suspect]
     Indication: PATENT DUCTUS ARTERIOSUS
     Dosage: .21 MG/KG/26 HOURS IV
     Route: 042
     Dates: start: 19971212, end: 19971212
  2. INDOCIN I.V. [Suspect]
     Indication: PATENT DUCTUS ARTERIOSUS
     Dosage: .21 MG/KG/26 HOURS IV
     Route: 042
     Dates: start: 19971213, end: 19971213
  3. BERACTANT [Concomitant]
  4. CEFOTAXIME SODIUM [Concomitant]
  5. DOBUTAMINE HCI [Concomitant]
  6. DOPAMINE HCI [Concomitant]
  7. ISOPROTERENOL HCI [Concomitant]
  8. NITROGLYCERIN [Concomitant]

REACTIONS (17)
  - ASPARTATE AMINOTRANSFERASE INCREASED [None]
  - BLOOD BILIRUBIN INCREASED [None]
  - BLOOD GLUCOSE DECREASED [None]
  - BLOOD SODIUM DECREASED [None]
  - BRADYCARDIA NEONATAL [None]
  - GENERALISED OEDEMA [None]
  - HAEMOGLOBIN DECREASED [None]
  - HYPERKALAEMIA [None]
  - MATERNAL DRUGS AFFECTING FOETUS [None]
  - NEONATAL DISORDER [None]
  - NEONATAL INFECTION [None]
  - NEONATAL RESPIRATORY FAILURE [None]
  - PATENT DUCTUS ARTERIOSUS [None]
  - PULMONARY HAEMORRHAGE [None]
  - RED BLOOD CELL COUNT DECREASED [None]
  - RENAL FAILURE NEONATAL [None]
  - THROMBOCYTOPENIA NEONATAL [None]
